FAERS Safety Report 7570798-2 (Version None)
Quarter: 2011Q2

REPORT INFORMATION
  Report Type: 
  Country: None (occurrence: None)
  Receive Date: 20110624
  Receipt Date: 20110519
  Transmission Date: 20111010
  Serious: No
  Sender: FDA-Public Use
  Company Number: US-ALLERGAN-1106906US

PATIENT
  Age: 51 Year
  Sex: Female

DRUGS (3)
  1. MASCARA [Concomitant]
  2. LATISSE [Suspect]
     Indication: HYPOTRICHOSIS
     Dosage: 2 GTT, QHS
     Route: 061
     Dates: start: 20101101
  3. PERMANENT MAKE-UP [Concomitant]

REACTIONS (2)
  - SKIN HYPERPIGMENTATION [None]
  - DRUG INEFFECTIVE [None]
